FAERS Safety Report 6931509-4 (Version None)
Quarter: 2010Q3

REPORT INFORMATION
  Report Type: 
  Country: None (occurrence: None)
  Receive Date: 20100819
  Receipt Date: 20100805
  Transmission Date: 20110219
  Serious: Yes (Other)
  Sender: FDA-Public Use
  Company Number: PHHY2010BR51750

PATIENT
  Sex: Female

DRUGS (2)
  1. FORASEQ [Suspect]
     Indication: DYSPNOEA
     Dosage: 1 DF DAILY
  2. DIAZEPAM [Concomitant]
     Indication: SLEEP DISORDER

REACTIONS (6)
  - DEPRESSION [None]
  - DYSPNOEA [None]
  - MALAISE [None]
  - PRODUCT QUALITY ISSUE [None]
  - TACHYCARDIA [None]
  - WRONG TECHNIQUE IN DRUG USAGE PROCESS [None]
